FAERS Safety Report 24122505 (Version 1)
Quarter: 2024Q3

REPORT INFORMATION
  Report Type: Spontaneous
  Country: US (occurrence: US)
  Receive Date: 20240723
  Receipt Date: 20240723
  Transmission Date: 20241016
  Serious: No
  Sender: AMGEN
  Company Number: US-AMGEN-USASP2024141072

PATIENT
  Age: 82 Day
  Sex: Male
  Weight: 1.85 kg

DRUGS (1)
  1. PROCRIT [Suspect]
     Active Substance: ERYTHROPOIETIN
     Indication: Anaemia
     Dosage: UNK, 200 U/KG/DAY FOR 10 DAYS
     Route: 058

REACTIONS (2)
  - Reticulocyte count increased [Unknown]
  - Haematocrit increased [Unknown]
